FAERS Safety Report 23519016 (Version 2)
Quarter: 2025Q1

REPORT INFORMATION
  Report Type: Spontaneous
  Country: US (occurrence: US)
  Receive Date: 20240213
  Receipt Date: 20250207
  Transmission Date: 20250408
  Serious: No
  Sender: NOVARTIS
  Company Number: US-002147023-NVSC2024US030845

PATIENT
  Age: 68 Year
  Sex: Male

DRUGS (12)
  1. COSENTYX [Suspect]
     Active Substance: SECUKINUMAB
     Indication: Psoriatic arthropathy
     Route: 065
  2. ENBREL [Suspect]
     Active Substance: ETANERCEPT
     Indication: Psoriatic arthropathy
     Route: 065
     Dates: start: 1999, end: 2020
  3. ENBREL [Suspect]
     Active Substance: ETANERCEPT
     Route: 065
     Dates: end: 202104
  4. ENBREL [Suspect]
     Active Substance: ETANERCEPT
     Dosage: 50 MG, QW (QWK)
     Route: 065
  5. ENBREL [Suspect]
     Active Substance: ETANERCEPT
     Route: 065
  6. ENBREL [Suspect]
     Active Substance: ETANERCEPT
     Route: 065
  7. ENBREL [Suspect]
     Active Substance: ETANERCEPT
     Dosage: 50 MG, QW (QWK)
     Route: 065
  8. OTEZLA [Suspect]
     Active Substance: APREMILAST
     Indication: Product used for unknown indication
     Route: 065
     Dates: start: 202206
  9. OTEZLA [Suspect]
     Active Substance: APREMILAST
     Dosage: 30 MG, BID
     Route: 065
     Dates: start: 202106
  10. STELARA [Concomitant]
     Active Substance: USTEKINUMAB
     Indication: Product used for unknown indication
     Route: 065
  11. PREDNISONE [Concomitant]
     Active Substance: PREDNISONE
     Indication: Product used for unknown indication
     Route: 065
  12. METHYLPREDNISOLONE [Concomitant]
     Active Substance: METHYLPREDNISOLONE
     Indication: Product used for unknown indication
     Route: 065

REACTIONS (9)
  - Injection site pain [Unknown]
  - Insomnia [Unknown]
  - Vomiting [Unknown]
  - Blood pressure increased [Not Recovered/Not Resolved]
  - Psoriatic arthropathy [Unknown]
  - Therapeutic product effect incomplete [Unknown]
  - Drug ineffective [Unknown]
  - Device difficult to use [Unknown]
  - Accidental exposure to product [Unknown]
